FAERS Safety Report 9041869 (Version 1)
Quarter: 2013Q1

REPORT INFORMATION
  Report Type: Report from Study
  Country: US (occurrence: US)
  Receive Date: 20130129
  Receipt Date: 20130129
  Transmission Date: 20140127
  Serious: No
  Sender: FDA-Public Use
  Company Number: US-ABBOTT-12P-163-0903705-00

PATIENT
  Age: 27 Year
  Sex: Male

DRUGS (2)
  1. HUMIRA 40 MG/0.8 ML PEN [Suspect]
     Indication: PSORIATIC ARTHROPATHY
  2. HUMIRA 40 MG/0.8 ML PEN [Suspect]

REACTIONS (14)
  - Nasopharyngitis [Not Recovered/Not Resolved]
  - Pruritus [Recovered/Resolved]
  - Local swelling [Recovered/Resolved]
  - Feeling hot [Recovered/Resolved]
  - Local swelling [Not Recovered/Not Resolved]
  - Rash [Recovered/Resolved]
  - Pruritus [Recovered/Resolved]
  - Nervousness [Unknown]
  - Nausea [Recovering/Resolving]
  - Decreased appetite [Recovering/Resolving]
  - Stress [None]
  - Nervousness [Recovering/Resolving]
  - Insomnia [None]
  - Headache [Recovering/Resolving]
